FAERS Safety Report 21810353 (Version 1)
Quarter: 2023Q1

REPORT INFORMATION
  Report Type: Report from Study
  Country: KR (occurrence: KR)
  Receive Date: 20230103
  Receipt Date: 20230103
  Transmission Date: 20230417
  Serious: Yes (Other)
  Sender: FDA-Public Use
  Company Number: KR-MYLANLABS-2022M1145190

PATIENT
  Sex: Female
  Weight: 58 kg

DRUGS (14)
  1. TRASTUZUMAB [Suspect]
     Active Substance: TRASTUZUMAB
     Indication: HER2 positive breast cancer
     Dosage: 348 MILLIGRAM
     Route: 042
     Dates: start: 20200624, end: 20200624
  2. TRASTUZUMAB [Suspect]
     Active Substance: TRASTUZUMAB
     Dosage: 348 MILLIGRAM
     Route: 042
     Dates: start: 20200715, end: 20200715
  3. TRASTUZUMAB [Suspect]
     Active Substance: TRASTUZUMAB
     Dosage: 348 MILLIGRAM
     Route: 042
     Dates: start: 20200805, end: 20200805
  4. TRASTUZUMAB [Suspect]
     Active Substance: TRASTUZUMAB
     Dosage: 348 MILLIGRAM
     Route: 042
     Dates: start: 20200828, end: 20200828
  5. TRASTUZUMAB [Suspect]
     Active Substance: TRASTUZUMAB
     Dosage: 348 MILLIGRAM
     Route: 042
     Dates: start: 20200916, end: 20200916
  6. TRASTUZUMAB [Suspect]
     Active Substance: TRASTUZUMAB
     Dosage: 464 MILLIGRAM
     Route: 042
     Dates: start: 20200603, end: 20200603
  7. MISOPROSTOL [Concomitant]
     Active Substance: MISOPROSTOL
     Indication: Gastritis prophylaxis
     Dosage: UNK
     Route: 048
     Dates: start: 20200602, end: 20200831
  8. ACETAMINOPHEN\CODEINE\IBUPROFEN [Concomitant]
     Active Substance: ACETAMINOPHEN\CODEINE\IBUPROFEN
     Indication: Cancer pain
     Dosage: UNK
     Route: 048
     Dates: start: 20200603, end: 20200916
  9. CHLORPHENIRAMINE MALEATE [Concomitant]
     Active Substance: CHLORPHENIRAMINE MALEATE
     Indication: Product used for unknown indication
     Dosage: UNK
     Route: 042
     Dates: start: 20200603, end: 20200916
  10. DEXAMETHASONE [Concomitant]
     Active Substance: DEXAMETHASONE
     Indication: Product used for unknown indication
     Dosage: UNK
     Route: 048
     Dates: start: 20200602, end: 20200917
  11. LAFUTIDINE [Concomitant]
     Active Substance: LAFUTIDINE
     Indication: Gastritis prophylaxis
     Dosage: UNK
     Route: 048
     Dates: start: 20200603, end: 20200608
  12. METOCLOPRAMIDE [Concomitant]
     Active Substance: METOCLOPRAMIDE
     Indication: Prophylaxis of nausea and vomiting
     Dosage: UNK
     Route: 048
     Dates: start: 20200603, end: 20200916
  13. NEURONTIN [Concomitant]
     Active Substance: GABAPENTIN
     Indication: Neuropathy peripheral
     Dosage: UNK
     Route: 048
     Dates: start: 20200603, end: 20200826
  14. FAMOTIDINE [Concomitant]
     Active Substance: FAMOTIDINE
     Indication: Gastritis prophylaxis
     Dosage: UNK
     Route: 048
     Dates: start: 20200624, end: 20200720

REACTIONS (3)
  - Hypokalaemia [Recovered/Resolved]
  - Hypophagia [Recovered/Resolved]
  - Dyspepsia [Recovered/Resolved]

NARRATIVE: CASE EVENT DATE: 20200715
